FAERS Safety Report 6602888-2 (Version None)
Quarter: 2010Q1

REPORT INFORMATION
  Report Type: 
  Country: None (occurrence: None)
  Receive Date: 20100226
  Receipt Date: 20100212
  Transmission Date: 20100710
  Serious: Yes (Hospitalization)
  Sender: FDA-Public Use
  Company Number: BR-ELI_LILLY_AND_COMPANY-BR201002004491

PATIENT
  Sex: Female
  Weight: 87 kg

DRUGS (8)
  1. FORTEO [Suspect]
     Dosage: UNK, UNKNOWN
     Route: 065
  2. CARVEDILOL [Concomitant]
     Indication: CARDIAC DISORDER
     Dosage: UNK, UNKNOWN
     Route: 065
  3. BUFERIN [Concomitant]
     Indication: CARDIAC DISORDER
     Dosage: UNK, UNKNOWN
     Route: 065
  4. PANTOZOL [Concomitant]
     Indication: CARDIAC DISORDER
     Dosage: UNK, UNKNOWN
     Route: 065
  5. ARADOIS [Concomitant]
     Dosage: UNK, UNKNOWN
     Route: 065
  6. OSCAL D [Concomitant]
     Dosage: UNK, UNKNOWN
     Route: 065
  7. TRAMOL /00020001/ [Concomitant]
     Indication: PAIN
     Dosage: UNK, UNKNOWN
     Route: 065
  8. CORTIZONE [Concomitant]
     Indication: BONE PAIN
     Dosage: UNK, UNKNOWN
     Route: 065

REACTIONS (1)
  - PULMONARY EMBOLISM [None]
